FAERS Safety Report 9798528 (Version 1)
Quarter: 2014Q1

REPORT INFORMATION
  Report Type: Report from Study
  Country: CO (occurrence: CO)
  Receive Date: 20140106
  Receipt Date: 20140106
  Transmission Date: 20141002
  Serious: Yes (Death)
  Sender: FDA-Public Use
  Company Number: CO-SA-2013SA136609

PATIENT
  Age: 70 Year
  Sex: Female

DRUGS (6)
  1. LANTUS [Suspect]
     Indication: DIABETES MELLITUS
     Dosage: DOSE:20 UNIT(S)
     Route: 058
     Dates: start: 2010, end: 20131223
  2. RIVAROXABAN [Suspect]
     Indication: PROPHYLAXIS
     Route: 048
     Dates: start: 201311, end: 20131223
  3. INSULIN LISPRO [Concomitant]
     Indication: DIABETES MELLITUS
     Dosage: DOSE:5 UNIT(S)
     Route: 058
     Dates: end: 20131223
  4. OMEPRAZOLE [Concomitant]
     Route: 048
     Dates: end: 20131223
  5. LEVOTHYROXINE [Concomitant]
     Indication: HYPOTHYROIDISM
     Route: 048
     Dates: end: 20131223
  6. ATORVASTATIN [Concomitant]
     Indication: DYSLIPIDAEMIA
     Route: 048
     Dates: end: 20131223

REACTIONS (1)
  - Thrombotic stroke [Fatal]
